FAERS Safety Report 16264379 (Version 1)
Quarter: 2019Q2

REPORT INFORMATION
  Report Type: Spontaneous
  Country: SE (occurrence: SE)
  Receive Date: 20190502
  Receipt Date: 20190502
  Transmission Date: 20190711
  Serious: Yes (Hospitalization)
  Sender: FDA-Public Use
  Company Number: SE-PFIZER INC-2019182923

PATIENT
  Sex: Male

DRUGS (6)
  1. ZOLOFT [Suspect]
     Active Substance: SERTRALINE HYDROCHLORIDE
     Dosage: UNK (2)
     Route: 048
     Dates: start: 20141026, end: 20141026
  2. SEROQUEL [Suspect]
     Active Substance: QUETIAPINE FUMARATE
     Dosage: UNK (2)
     Route: 048
     Dates: start: 20141026, end: 20141026
  3. POSTAFEN [MECLOZINE HYDROCHLORIDE] [Suspect]
     Active Substance: MECLIZINE MONOHYDROCHLORIDE
     Dosage: UNK (1 PACKAGE)
     Route: 048
     Dates: start: 20141026, end: 20141026
  4. THERALEN [Suspect]
     Active Substance: TRIMEPRAZINE
     Dosage: 100 MG, UNK (AMOUNT 20)
     Route: 048
     Dates: start: 20141026, end: 20141026
  5. DIMOR [Suspect]
     Active Substance: LOPERAMIDE
     Dosage: 700 MG, UNK (AMOUNT 350)
     Route: 048
     Dates: start: 20141026, end: 20141026
  6. PROPAVAN [Suspect]
     Active Substance: PROPIOMAZINE
     Dosage: UNK

REACTIONS (9)
  - Intentional self-injury [Unknown]
  - Intentional overdose [Unknown]
  - Irregular breathing [Recovering/Resolving]
  - Depressed level of consciousness [Recovering/Resolving]
  - Oxygen saturation decreased [Unknown]
  - Electrocardiogram QRS complex prolonged [Unknown]
  - Suicidal ideation [Unknown]
  - Pyrexia [Unknown]
  - Consciousness fluctuating [Recovering/Resolving]

NARRATIVE: CASE EVENT DATE: 201410
